FAERS Safety Report 18547237 (Version 1)
Quarter: 2020Q4

REPORT INFORMATION
  Report Type: Report from Study
  Country: US (occurrence: US)
  Receive Date: 20201125
  Receipt Date: 20201125
  Transmission Date: 20210114
  Serious: Yes (Hospitalization, Other)
  Sender: FDA-Public Use
  Company Number: US-TAKEDA-2020TUS035132

PATIENT
  Sex: Male

DRUGS (1)
  1. VEDOLIZUMAB [Suspect]
     Active Substance: VEDOLIZUMAB
     Indication: CROHN^S DISEASE
     Dosage: 300 MILLIGRAM
     Route: 042
     Dates: start: 20200219

REACTIONS (5)
  - Clostridium difficile infection [Unknown]
  - Crohn^s disease [Unknown]
  - Nausea [Recovered/Resolved]
  - Dyspepsia [Recovering/Resolving]
  - Fatigue [Recovered/Resolved]
